FAERS Safety Report 24315470 (Version 1)
Quarter: 2024Q3

REPORT INFORMATION
  Report Type: Other
  Country: RU (occurrence: RU)
  Receive Date: 20240913
  Receipt Date: 20240913
  Transmission Date: 20241016
  Serious: Yes (Death)
  Sender: ORBION PHARMACEUTICALS
  Company Number: RU-OrBion Pharmaceuticals Private Limited-2161539

PATIENT
  Age: 9 Year
  Sex: Male

DRUGS (2)
  1. DIVALPROEX SODIUM [Suspect]
     Active Substance: DIVALPROEX SODIUM
     Indication: Epilepsy
     Route: 065
  2. LEVETIRACETAM [Concomitant]
     Active Substance: LEVETIRACETAM
     Route: 065

REACTIONS (2)
  - Hepatitis toxic [Fatal]
  - Multiple organ dysfunction syndrome [Fatal]
